FAERS Safety Report 23194359 (Version 1)
Quarter: 2023Q4

REPORT INFORMATION
  Report Type: Spontaneous
  Country: CN (occurrence: CN)
  Receive Date: 20231117
  Receipt Date: 20231117
  Transmission Date: 20240110
  Serious: Yes (Other)
  Sender: FDA-Public Use
  Company Number: CN-SHANGHAI JUNSHI BIOSCIENCES CO., LTD.-CN2023008577

PATIENT

DRUGS (6)
  1. TORIPALIMAB [Suspect]
     Active Substance: TORIPALIMAB
     Indication: Bladder cancer
     Dosage: 160 MG, EVERY 21 DAYS
     Route: 041
     Dates: start: 20231022, end: 20231022
  2. TORIPALIMAB [Suspect]
     Active Substance: TORIPALIMAB
     Indication: Metastases to bone
  3. COIX LACRYMA-JOBI VAR. MA-YUEN SEED [Suspect]
     Active Substance: COIX LACRYMA-JOBI VAR. MA-YUEN SEED
     Indication: Bladder cancer
     Dosage: 10 G, TID
     Route: 041
     Dates: start: 20231020, end: 20231025
  4. COIX LACRYMA-JOBI VAR. MA-YUEN SEED [Suspect]
     Active Substance: COIX LACRYMA-JOBI VAR. MA-YUEN SEED
     Indication: Metastases to bone
  5. DISITAMAB VEDOTIN [Concomitant]
     Active Substance: DISITAMAB VEDOTIN
     Indication: Bladder cancer
     Dosage: UNK
     Dates: start: 20231022
  6. DISITAMAB VEDOTIN [Concomitant]
     Active Substance: DISITAMAB VEDOTIN
     Indication: Metastases to bone

REACTIONS (2)
  - Myelosuppression [Recovering/Resolving]
  - Off label use [Unknown]

NARRATIVE: CASE EVENT DATE: 20231022
